FAERS Safety Report 24539131 (Version 1)
Quarter: 2024Q4

REPORT INFORMATION
  Report Type: Spontaneous
  Country: US (occurrence: US)
  Receive Date: 20241023
  Receipt Date: 20241023
  Transmission Date: 20250114
  Serious: No
  Sender: AMGEN
  Company Number: US-AMGEN-USASP2024207765

PATIENT
  Age: 48 Year
  Sex: Female

DRUGS (2)
  1. XGEVA [Suspect]
     Active Substance: DENOSUMAB
     Indication: Breast cancer stage IV
     Dosage: UNK, QMO
     Route: 065
     Dates: start: 202404
  2. XGEVA [Suspect]
     Active Substance: DENOSUMAB
     Indication: Metastases to bone

REACTIONS (1)
  - Bone pain [Unknown]

NARRATIVE: CASE EVENT DATE: 20240101
